FAERS Safety Report 4802283-2 (Version None)
Quarter: 2005Q4

REPORT INFORMATION
  Report Type: 
  Country: None (occurrence: None)
  Receive Date: 20051012
  Receipt Date: 20050728
  Transmission Date: 20060501
  Serious: Yes (Other)
  Sender: FDA-Public Use
  Company Number: 2005113396

PATIENT
  Sex: Female

DRUGS (1)
  1. DEPO-PROVERA [Suspect]
     Indication: CONTRACEPTION
     Dosage: 150 MG (150 MG, SINGLE

REACTIONS (9)
  - BACTERIA WOUND IDENTIFIED [None]
  - GENERAL PHYSICAL HEALTH DETERIORATION [None]
  - INJECTION SITE PAIN [None]
  - INJECTION SITE SWELLING [None]
  - NECROSIS [None]
  - OPEN WOUND [None]
  - PHARMACEUTICAL PRODUCT COMPLAINT [None]
  - RASH PUSTULAR [None]
  - SWELLING [None]
